APPROVED DRUG PRODUCT: INDOCIN
Active Ingredient: INDOMETHACIN
Strength: 25MG/5ML
Dosage Form/Route: SUSPENSION;ORAL
Application: N018332 | Product #001 | TE Code: AB
Applicant: ZYLA LIFE SCIENCES US INC
Approved: Oct 10, 1985 | RLD: Yes | RS: Yes | Type: RX